FAERS Safety Report 22393644 (Version 2)
Quarter: 2023Q2

REPORT INFORMATION
  Report Type: Spontaneous
  Country: CA (occurrence: CA)
  Receive Date: 20230601
  Receipt Date: 20230613
  Transmission Date: 20230721
  Serious: Yes (Other)
  Sender: FDA-Public Use
  Company Number: CA-PFIZER INC-202300157563

PATIENT
  Age: 53 Year
  Sex: Female
  Weight: 72 kg

DRUGS (2)
  1. RUXIENCE [Suspect]
     Active Substance: RITUXIMAB-PVVR
     Indication: Relapsing-remitting multiple sclerosis
     Dosage: 1000 MG, DAY 1 AND DAY 15, AND THEN SUBSEQUENT
     Route: 042
     Dates: start: 20230526
  2. BACLOFEN [Concomitant]
     Active Substance: BACLOFEN
     Dosage: UNK

REACTIONS (9)
  - Urticaria [Recovered/Resolved]
  - Oropharyngeal pain [Recovering/Resolving]
  - Flushing [Recovering/Resolving]
  - Hyperhidrosis [Recovering/Resolving]
  - Off label use [Unknown]
  - Pruritus [Recovered/Resolved]
  - Dry skin [Recovering/Resolving]
  - Erythema [Recovered/Resolved]
  - Skin warm [Recovering/Resolving]

NARRATIVE: CASE EVENT DATE: 20230526
